FAERS Safety Report 23311035 (Version 1)
Quarter: 2023Q4

REPORT INFORMATION
  Report Type: Spontaneous
  Country: FR (occurrence: FR)
  Receive Date: 20231218
  Receipt Date: 20231218
  Transmission Date: 20240110
  Serious: Yes (Hospitalization, Other)
  Sender: FDA-Public Use
  Company Number: FR-ALKEM LABORATORIES LIMITED-FR-ALKEM-2023-09071

PATIENT
  Age: 75 Year
  Sex: Female

DRUGS (5)
  1. MYCOPHENOLATE MOFETIL [Suspect]
     Active Substance: MYCOPHENOLATE MOFETIL
     Indication: Immunosuppression
     Dosage: UNK
     Route: 065
  2. BELATACEPT [Suspect]
     Active Substance: BELATACEPT
     Indication: Immunosuppression
     Dosage: UNK (MONTHLY INFUSIONS)
     Route: 065
  3. BELATACEPT [Suspect]
     Active Substance: BELATACEPT
     Dosage: 5 MG/DAY
     Route: 065
  4. PREDNISONE [Suspect]
     Active Substance: PREDNISONE
     Indication: Immunosuppression
     Dosage: UNK
     Route: 065
  5. PREDNISONE [Suspect]
     Active Substance: PREDNISONE
     Dosage: 5 MG/DAY
     Route: 065

REACTIONS (3)
  - Bacillary angiomatosis [Recovered/Resolved]
  - Cat scratch disease [Recovered/Resolved]
  - Disease recurrence [Recovered/Resolved]
